FAERS Safety Report 8327953-3 (Version None)
Quarter: 2012Q2

REPORT INFORMATION
  Report Type: 
  Country: None (occurrence: None)
  Receive Date: 20120430
  Receipt Date: 20120418
  Transmission Date: 20120825
  Serious: Yes (Death)
  Sender: FDA-Public Use
  Company Number: UTC-017969

PATIENT
  Age: 9 Month
  Sex: Female
  Weight: 6.14 kg

DRUGS (3)
  1. REMODULIN [Suspect]
     Indication: COR PULMONALE CHRONIC
     Dosage: (89.2 NANGM), SUBCUTANEOUS
     Route: 058
     Dates: start: 20111103
  2. TRACLEER [Concomitant]
  3. REVATIO [Concomitant]

REACTIONS (1)
  - DEATH [None]
